FAERS Safety Report 15144911 (Version 1)
Quarter: 2018Q3

REPORT INFORMATION
  Report Type: Spontaneous
  Country: US (occurrence: US)
  Receive Date: 20180713
  Receipt Date: 20180713
  Transmission Date: 20181010
  Serious: No
  Sender: FDA-Public Use
  Company Number: US-CHILTERN-US-2018-000016

PATIENT
  Age: 89 Year
  Sex: Female

DRUGS (3)
  1. TIMOLOL MALEATE. [Concomitant]
     Active Substance: TIMOLOL MALEATE
  2. TRAVATAN [Concomitant]
     Active Substance: TRAVOPROST
  3. RHOPRESSA [Suspect]
     Active Substance: NETARSUDIL MESYLATE
     Indication: GLAUCOMA
     Dosage: UNK, UNK
     Route: 047

REACTIONS (2)
  - Swelling face [Recovered/Resolved]
  - Conjunctival hyperaemia [Recovered/Resolved]
